FAERS Safety Report 6713960-0 (Version None)
Quarter: 2010Q2

REPORT INFORMATION
  Report Type: 
  Country: None (occurrence: None)
  Receive Date: 20100503
  Receipt Date: 20100421
  Transmission Date: 20101027
  Serious: Yes (Hospitalization, Other)
  Sender: FDA-Public Use
  Company Number: 2010AP000341

PATIENT
  Age: 57 Year
  Sex: Male

DRUGS (2)
  1. APO-GAIN (MINOXIDIL [Suspect]
     Indication: ALOPECIA
     Dosage: 1 ML; TOP;BID
     Route: 061
     Dates: start: 20090101, end: 20100209
  2. ROSUVASTATIN (ROSUVASTATIN) [Concomitant]

REACTIONS (3)
  - BURNING SENSATION [None]
  - DIZZINESS [None]
  - HEART RATE INCREASED [None]
